FAERS Safety Report 8718207 (Version 5)
Quarter: 2012Q4

REPORT INFORMATION
  Report Type: Report from Study
  Country: GB (occurrence: GB)
  Receive Date: 20120810
  Receipt Date: 20121107
  Transmission Date: 20130627
  Serious: Yes (Hospitalization)
  Sender: FDA-Public Use
  Company Number: GB-ABBOTT-12P-167-0964086-00

PATIENT
  Age: 76 Year
  Sex: Female
  Weight: 73.1 kg

DRUGS (6)
  1. EPROSARTAN [Suspect]
     Indication: ESSENTIAL HYPERTENSION
     Dosage: 2 Tabs
     Route: 048
     Dates: start: 20100723, end: 20120814
  2. ATENOLOL [Concomitant]
     Indication: BLOOD PRESSURE INCREASED
     Dates: start: 1999
  3. SIMVASTATIN [Concomitant]
     Indication: BLOOD CHOLESTEROL INCREASED
     Dates: start: 2009
  4. PARACETAMOL [Concomitant]
     Indication: OSTEOARTHRITIS
     Dates: start: 2005
  5. PARACETAMOL [Concomitant]
     Indication: ARTHRALGIA
  6. LANSOPRAZOLE [Concomitant]
     Indication: HIATUS HERNIA
     Dates: start: 20080303

REACTIONS (1)
  - Dyspnoea [Recovered/Resolved]
